FAERS Safety Report 25866141 (Version 1)
Quarter: 2025Q3

REPORT INFORMATION
  Report Type: Spontaneous
  Country: CN (occurrence: CN)
  Receive Date: 20250930
  Receipt Date: 20250930
  Transmission Date: 20251021
  Serious: Yes (Hospitalization)
  Sender: BOEHRINGER INGELHEIM
  Company Number: CN-BoehringerIngelheim-2025-BI-098675

PATIENT
  Age: 75 Year
  Sex: Male

DRUGS (1)
  1. GILOTRIF [Suspect]
     Active Substance: AFATINIB
     Indication: Lung neoplasm malignant
     Dates: start: 20250804, end: 20250925

REACTIONS (3)
  - Diarrhoea [Unknown]
  - Mouth ulceration [Unknown]
  - Oral pain [Unknown]

NARRATIVE: CASE EVENT DATE: 20250925
